FAERS Safety Report 11405739 (Version 2)
Quarter: 2016Q1

REPORT INFORMATION
  Report Type: Spontaneous
  Country: US (occurrence: US)
  Receive Date: 20150821
  Receipt Date: 20160329
  Transmission Date: 20160525
  Serious: Yes (Hospitalization, Other)
  Sender: FDA-Public Use
  Company Number: US-GLAXOSMITHKLINE-A0874025A

PATIENT
  Age: 72 Year
  Sex: Male

DRUGS (29)
  1. FINASTERIDE. [Concomitant]
     Active Substance: FINASTERIDE
  2. LISINOPRIL. [Concomitant]
     Active Substance: LISINOPRIL
  3. SIMVASTATIN. [Concomitant]
     Active Substance: SIMVASTATIN
  4. ASPIRIN. [Concomitant]
     Active Substance: ASPIRIN
  5. VITAMIN D3 [Concomitant]
     Active Substance: CHOLECALCIFEROL
  6. IRON [Concomitant]
     Active Substance: IRON
  7. NOVOLOG [Concomitant]
     Active Substance: INSULIN ASPART
  8. METOLAZONE. [Concomitant]
     Active Substance: METOLAZONE
  9. ALBUTEROL NEBULIZER [Concomitant]
     Active Substance: ALBUTEROL
  10. ADVAIR HFA [Suspect]
     Active Substance: FLUTICASONE PROPIONATE\SALMETEROL XINAFOATE
     Indication: CHRONIC OBSTRUCTIVE PULMONARY DISEASE
     Dosage: 1 PUFF(S), BID
     Route: 055
     Dates: start: 2006
  11. LEVOTHYROXINE. [Concomitant]
     Active Substance: LEVOTHYROXINE
  12. BAYER ASPIRIN [Concomitant]
     Active Substance: ASPIRIN
  13. ADVAIR HFA [Suspect]
     Active Substance: FLUTICASONE PROPIONATE\SALMETEROL XINAFOATE
     Indication: EMPHYSEMA
  14. PROVENTIL [Concomitant]
     Active Substance: ALBUTEROL
  15. ADVAIR HFA [Suspect]
     Active Substance: FLUTICASONE PROPIONATE\SALMETEROL XINAFOATE
     Indication: ASTHMA
     Dosage: 1 PUFF(S), BID
     Route: 055
  16. GLYBURIDE. [Concomitant]
     Active Substance: GLYBURIDE
  17. VITAMIN C [Concomitant]
     Active Substance: ASCORBIC ACID
  18. POTASSIUM CHLORIDE. [Concomitant]
     Active Substance: POTASSIUM CHLORIDE
  19. FUROSEMIDE. [Concomitant]
     Active Substance: FUROSEMIDE
  20. LANTUS [Concomitant]
     Active Substance: INSULIN GLARGINE
  21. PREDNISONE. [Concomitant]
     Active Substance: PREDNISONE
  22. HYDROCHLOROTHIAZIDE. [Concomitant]
     Active Substance: HYDROCHLOROTHIAZIDE
  23. VITAMIN B12 [Concomitant]
     Active Substance: CYANOCOBALAMIN
  24. AZITHROMYCIN ANHYDROUS. [Concomitant]
     Active Substance: AZITHROMYCIN ANHYDROUS
  25. SPIRIVA [Concomitant]
     Active Substance: TIOTROPIUM BROMIDE MONOHYDRATE
  26. OMEPRAZOLE. [Concomitant]
     Active Substance: OMEPRAZOLE
  27. ATORVASTATIN [Concomitant]
     Active Substance: ATORVASTATIN
  28. METFORMIN [Concomitant]
     Active Substance: METFORMIN HYDROCHLORIDE
  29. DILTIAZEM [Concomitant]
     Active Substance: DILTIAZEM

REACTIONS (21)
  - Pneumonia [Recovered/Resolved]
  - Dyspnoea [Unknown]
  - Therapeutic procedure [Unknown]
  - Pleural effusion [Not Recovered/Not Resolved]
  - Cardiac valve disease [Unknown]
  - Blood potassium decreased [Unknown]
  - Chronic obstructive pulmonary disease [Not Recovered/Not Resolved]
  - Extrasystoles [Recovered/Resolved]
  - Pericardial effusion [Not Recovered/Not Resolved]
  - Cataract [Unknown]
  - Productive cough [Recovered/Resolved]
  - Hospitalisation [Unknown]
  - Hypotension [Unknown]
  - Pseudomonas infection [Unknown]
  - Emphysema [Recovered/Resolved]
  - Chest discomfort [Unknown]
  - Heart rate increased [Unknown]
  - Increased upper airway secretion [Unknown]
  - Cough [Recovering/Resolving]
  - Wheezing [Unknown]
  - Renal impairment [Unknown]

NARRATIVE: CASE EVENT DATE: 20160229
